FAERS Safety Report 5485919-5 (Version None)
Quarter: 2007Q4

REPORT INFORMATION
  Report Type: 
  Country: None (occurrence: None)
  Receive Date: 20071015
  Receipt Date: 20071009
  Transmission Date: 20080405
  Serious: Yes (Other)
  Sender: FDA-Public Use
  Company Number: NO-SHR-NO-2007-038122

PATIENT
  Age: 75 Year
  Sex: Female

DRUGS (1)
  1. ULTRAVIST (PHARMACY BULK) [Suspect]

REACTIONS (7)
  - ANAPHYLACTIC SHOCK [None]
  - BRADYCARDIA [None]
  - LOSS OF CONSCIOUSNESS [None]
  - PARAESTHESIA [None]
  - RADIAL PULSE ABNORMAL [None]
  - RASH GENERALISED [None]
  - VISUAL ACUITY REDUCED [None]
